FAERS Safety Report 13774066 (Version 1)
Quarter: 2017Q3

REPORT INFORMATION
  Report Type: Report from Study
  Country: US (occurrence: US)
  Receive Date: 20170720
  Receipt Date: 20170720
  Transmission Date: 20171127
  Serious: Yes (Hospitalization)
  Sender: FDA-Public Use
  Company Number: US-TESARO, INC-US-2017TSO01351

PATIENT

DRUGS (1)
  1. ZEJULA [Suspect]
     Active Substance: NIRAPARIB
     Indication: OVARIAN CANCER
     Dosage: 300 MG, QD
     Route: 048
     Dates: start: 20170608, end: 20170618

REACTIONS (8)
  - Oral mucosal blistering [Unknown]
  - Vomiting [Unknown]
  - Contusion [Unknown]
  - Hypoaesthesia [Unknown]
  - Unevaluable event [Not Recovered/Not Resolved]
  - Rash [Unknown]
  - Adverse event [Not Recovered/Not Resolved]
  - Feeding disorder [Unknown]

NARRATIVE: CASE EVENT DATE: 201706
